FAERS Safety Report 16498126 (Version 1)
Quarter: 2019Q2

REPORT INFORMATION
  Report Type: Spontaneous
  Country: US (occurrence: US)
  Receive Date: 20190628
  Receipt Date: 20190628
  Transmission Date: 20190711
  Serious: Yes (Other)
  Sender: FDA-Public Use
  Company Number: US-LUNDBECK-DKLU3000024

PATIENT
  Age: 21 Year
  Sex: Male

DRUGS (1)
  1. ONFI [Suspect]
     Active Substance: CLOBAZAM
     Indication: LENNOX-GASTAUT SYNDROME
     Route: 048
     Dates: start: 2015

REACTIONS (5)
  - Fall [Unknown]
  - Incorrect dose administered [Not Recovered/Not Resolved]
  - Seizure [Unknown]
  - Internal injury [Unknown]
  - Skull fracture [Unknown]

NARRATIVE: CASE EVENT DATE: 201905
